FAERS Safety Report 5430066-1 (Version None)
Quarter: 2007Q3

REPORT INFORMATION
  Report Type: 
  Country: None (occurrence: None)
  Receive Date: 20070829
  Receipt Date: 20070820
  Transmission Date: 20080115
  Serious: Yes (Hospitalization, Other)
  Sender: FDA-Public Use
  Company Number: US-PFIZER INC-2007069625

PATIENT
  Sex: Male
  Weight: 88.5 kg

DRUGS (6)
  1. LIPITOR [Suspect]
     Indication: FAMILIAL RISK FACTOR
  2. PREDNISONE [Suspect]
  3. KLOR-CON [Concomitant]
  4. PROTONIX [Concomitant]
  5. LEVOTHYROXINE SODIUM [Concomitant]
  6. PROPRANOLOL [Concomitant]

REACTIONS (9)
  - BLOOD CREATINE PHOSPHOKINASE INCREASED [None]
  - COMA [None]
  - LIVER FUNCTION TEST ABNORMAL [None]
  - MUSCLE SPASMS [None]
  - OEDEMA PERIPHERAL [None]
  - RHABDOMYOLYSIS [None]
  - THYROID DISORDER [None]
  - UNEVALUABLE EVENT [None]
  - WEIGHT INCREASED [None]
